FAERS Safety Report 24320470 (Version 1)
Quarter: 2024Q3

REPORT INFORMATION
  Report Type: Spontaneous
  Country: US (occurrence: US)
  Receive Date: 20240915
  Receipt Date: 20240915
  Transmission Date: 20241016
  Serious: Yes (Death, Other)
  Sender: DR REDDYS
  Company Number: US-DRL-USA-SPO/USA/24/0013143

PATIENT
  Age: 49 Year
  Sex: Female

DRUGS (6)
  1. GEMCITABINE [Suspect]
     Active Substance: GEMCITABINE
     Indication: Angiosarcoma
  2. DOXORUBICIN [Suspect]
     Active Substance: DOXORUBICIN
     Indication: Angiosarcoma
  3. PEMBROLIZUMAB [Suspect]
     Active Substance: PEMBROLIZUMAB
     Indication: Angiosarcoma
     Dosage: FOUR CYCLES
  4. PAZOPANIB [Suspect]
     Active Substance: PAZOPANIB
     Indication: Angiosarcoma
  5. PACLITAXEL [Suspect]
     Active Substance: PACLITAXEL
     Indication: Angiosarcoma
  6. PREDNISONE [Concomitant]
     Active Substance: PREDNISONE
     Indication: Autoimmune neutropenia

REACTIONS (5)
  - Malignant neoplasm progression [Fatal]
  - Drug ineffective for unapproved indication [Fatal]
  - Gastrointestinal haemorrhage [Fatal]
  - Clostridium difficile colitis [Fatal]
  - Small intestinal obstruction [Fatal]
